FAERS Safety Report 6076028-5 (Version None)
Quarter: 2009Q1

REPORT INFORMATION
  Report Type: 
  Country: None (occurrence: None)
  Receive Date: 20090212
  Receipt Date: 20070531
  Transmission Date: 20090719
  Serious: Yes (Hospitalization)
  Sender: FDA-Public Use
  Company Number: FR-PFIZER INC-2009161948

PATIENT

DRUGS (3)
  1. EPIRUBICIN HCL [Suspect]
     Indication: GASTRIC CANCER
     Dosage: CYCLIC
  2. CISPLATIN [Suspect]
     Indication: GASTRIC CANCER
     Dosage: CYCLIC
  3. CAPECITABINE [Suspect]
     Indication: GASTRIC CANCER
     Dosage: CYCLIC

REACTIONS (1)
  - WEIGHT DECREASED [None]
